FAERS Safety Report 7063360-1 (Version None)
Quarter: 2010Q4

REPORT INFORMATION
  Report Type: 
  Country: None (occurrence: None)
  Receive Date: 20101026
  Receipt Date: 20100622
  Transmission Date: 20110411
  Serious: No
  Sender: FDA-Public Use
  Company Number: US-ABBOTT-08P-163-0534731-00

PATIENT
  Sex: Female
  Weight: 83.9 kg

DRUGS (4)
  1. LUPRON DEPOT [Suspect]
     Indication: POST PROCEDURAL COMPLICATION
     Route: 030
     Dates: start: 20071001
  2. ACIPHEX [Concomitant]
     Indication: BARRETT'S OESOPHAGUS
     Route: 048
  3. PROZAC [Concomitant]
     Indication: DEPRESSION
     Route: 048
  4. CIPRO [Concomitant]
     Indication: URINARY TRACT INFECTION
     Route: 048
     Dates: start: 20080101

REACTIONS (9)
  - ASTHENIA [None]
  - CONDITION AGGRAVATED [None]
  - DEPRESSION [None]
  - DYSPNOEA [None]
  - FATIGUE [None]
  - HOT FLUSH [None]
  - MYALGIA [None]
  - NAUSEA [None]
  - ORAL CANDIDIASIS [None]
